FAERS Safety Report 7821135-7 (Version None)
Quarter: 2011Q4

REPORT INFORMATION
  Report Type: 
  Country: None (occurrence: None)
  Receive Date: 20111018
  Receipt Date: 20111012
  Transmission Date: 20120403
  Serious: Yes (Death)
  Sender: FDA-Public Use
  Company Number: US-BAXTER-2011BH032040

PATIENT
  Age: 62 Year
  Sex: Female

DRUGS (2)
  1. GAMMAGARD LIQUID [Suspect]
     Indication: OFF LABEL USE
     Route: 065
     Dates: end: 20080101
  2. GAMMAGARD LIQUID [Suspect]
     Indication: MULTIPLE MYELOMA
     Route: 065
     Dates: end: 20080101

REACTIONS (1)
  - MULTIPLE MYELOMA [None]
